FAERS Safety Report 5045134-6 (Version None)
Quarter: 2006Q3

REPORT INFORMATION
  Report Type: 
  Country: None (occurrence: None)
  Receive Date: 20060707
  Receipt Date: 20060627
  Transmission Date: 20061208
  Serious: Yes (Other)
  Sender: FDA-Public Use
  Company Number: FR-SANOFI-SYNTHELABO-A01200604921

PATIENT
  Age: 62 Year
  Sex: Female
  Weight: 60 kg

DRUGS (3)
  1. TAHOR [Concomitant]
     Indication: DRUG USE FOR UNKNOWN INDICATION
     Dosage: UNK
     Route: 065
  2. PLAVIX [Suspect]
     Indication: PROPHYLAXIS
     Dosage: 75 MG
     Route: 048
     Dates: start: 20030101, end: 20060510
  3. PLAVIX [Suspect]
     Dosage: 75 MG
     Route: 048
     Dates: start: 20060620

REACTIONS (2)
  - OESOPHAGEAL STENOSIS [None]
  - OESOPHAGEAL ULCER [None]
